FAERS Safety Report 6910775-5 (Version None)
Quarter: 2010Q3

REPORT INFORMATION
  Report Type: 
  Country: None (occurrence: None)
  Receive Date: 20100806
  Receipt Date: 20100723
  Transmission Date: 20110219
  Serious: Yes (Hospitalization)
  Sender: FDA-Public Use
  Company Number: FR-PURDUE-GBR-2010-0006869

PATIENT
  Sex: Female

DRUGS (11)
  1. OXYCODONE HCL [Suspect]
     Indication: PAIN
     Dosage: UNK
     Route: 048
     Dates: end: 20091124
  2. OXYCONTIN [Suspect]
     Indication: PAIN
     Dosage: UNK
     Route: 048
     Dates: end: 20091124
  3. LASILIX                            /00032601/ [Concomitant]
     Dosage: 500 MG, 3/4, 1/2, 0
     Route: 065
  4. ATACAND [Concomitant]
     Dosage: 4 MG, 1/2 PER DAY
     Route: 065
  5. POTASSIUM CHLORIDE [Concomitant]
     Dosage: 1 G, BID
     Route: 065
  6. CORDARONE [Concomitant]
     Dosage: 200 MG, 1DAY/2
     Route: 065
  7. PANTOPRAZOLE SODIUM [Concomitant]
     Dosage: 40 MG, DAILY
     Route: 065
  8. NOCTRAN 10 [Concomitant]
     Dosage: 10 MG, DAILY
     Route: 065
  9. ACETAMINOPHEN [Concomitant]
     Route: 065
  10. MOTILIUM                           /00498201/ [Concomitant]
     Indication: NAUSEA
     Route: 065
  11. FORTIMEL [Concomitant]
     Dosage: 2 DAILY
     Route: 065

REACTIONS (2)
  - ERYTHEMA [None]
  - PRURITUS [None]
